FAERS Safety Report 8072839-5 (Version None)
Quarter: 2012Q1

REPORT INFORMATION
  Report Type: 
  Country: None (occurrence: None)
  Receive Date: 20120120
  Receipt Date: 20120109
  Transmission Date: 20120608
  Serious: Yes (Death, Hospitalization)
  Sender: FDA-Public Use
  Company Number: 2012MA000673

PATIENT
  Age: 57 Year
  Sex: Male
  Weight: 63.5036 kg

DRUGS (3)
  1. ALCOHOL [Concomitant]
  2. COCAINE [Concomitant]
  3. PAREGORIC LIQUID USP (ALPHARMA) [Suspect]

REACTIONS (4)
  - DYSPNOEA [None]
  - DRUG ABUSE [None]
  - COUGH [None]
  - HYPERHIDROSIS [None]
